FAERS Safety Report 7710422-9 (Version None)
Quarter: 2011Q3

REPORT INFORMATION
  Report Type: 
  Country: None (occurrence: None)
  Receive Date: 20110825
  Receipt Date: 20110811
  Transmission Date: 20111222
  Serious: Yes (Hospitalization)
  Sender: FDA-Public Use
  Company Number: FR-ELI_LILLY_AND_COMPANY-FR201103008348

PATIENT
  Age: 74 Year
  Sex: Female
  Weight: 65 kg

DRUGS (10)
  1. FIXICAL D3 [Concomitant]
     Dosage: UNK
  2. FORTEO [Suspect]
     Indication: OSTEOPOROSIS
     Dosage: 20 UG, QD
     Route: 065
     Dates: start: 20100201
  3. PRAXILENE [Concomitant]
     Dosage: UNK
  4. NEBIVOLOL HCL [Concomitant]
     Dosage: UNK
  5. PREDNISONE [Concomitant]
     Dosage: 2 MG, QD
  6. FOLIC ACID [Concomitant]
     Dosage: UNK
  7. PLAVIX [Concomitant]
  8. PRAZEPAM [Concomitant]
     Dosage: UNK
  9. LORAZEPAM [Concomitant]
  10. METHOTREXATE [Concomitant]
     Dosage: UNK

REACTIONS (1)
  - ARTERIAL STENT INSERTION [None]
